FAERS Safety Report 6166213-6 (Version None)
Quarter: 2009Q2

REPORT INFORMATION
  Report Type: 
  Country: None (occurrence: None)
  Receive Date: 20090424
  Receipt Date: 20090309
  Transmission Date: 20091009
  Serious: Yes (Hospitalization, Other)
  Sender: FDA-Public Use
  Company Number: GB-NOVOPROD-280870

PATIENT
  Sex: Female
  Weight: 1.6 kg

DRUGS (18)
  1. NOVORAPID [Suspect]
     Indication: DIABETES MELLITUS
     Dosage: 24 IU, QD
     Route: 064
  2. LEVEMIR [Suspect]
     Indication: DIABETES MELLITUS
     Dosage: 26 IU, QD
     Route: 064
  3. NOVOMIX 30 [Suspect]
     Indication: DRUG USE FOR UNKNOWN INDICATION
  4. VENTOLIN [Concomitant]
     Route: 015
  5. PHOLCODINE LINCTUS [Concomitant]
     Route: 015
     Dates: start: 20071120, end: 20071120
  6. PHOLCODINE LINCTUS [Concomitant]
     Route: 015
     Dates: start: 20080311, end: 20080311
  7. METOCLOPRAMIDE [Concomitant]
     Dosage: 10 G, QD
     Route: 015
     Dates: start: 20071212
  8. LACTULOSE [Concomitant]
     Dosage: 500 ML, QD
     Route: 015
     Dates: start: 20080118
  9. FOLIC ACID [Concomitant]
     Dosage: 5 G, QD
     Route: 015
     Dates: start: 20071115
  10. FOLIC ACID [Concomitant]
     Dosage: 400 G, QD
     Dates: start: 20080118
  11. GAVISCON [Concomitant]
     Dates: start: 20080401
  12. PARACETAMOL [Concomitant]
     Dosage: 500 MG, BID
     Route: 015
     Dates: start: 20080409
  13. AMOXICILLIN [Concomitant]
     Dosage: 500 MG, QD
     Route: 015
     Dates: start: 20080215
  14. PERMETHRIN [Concomitant]
     Route: 015
     Dates: start: 20080215
  15. FUCIDIN H                          /00524501/ [Concomitant]
     Route: 015
     Dates: start: 20080118
  16. CLOTRIMAZOLE [Concomitant]
     Route: 015
     Dates: start: 20080104
  17. CLOTRIMAZOLE [Concomitant]
     Dates: start: 20071212
  18. DERMOL                             /00337102/ [Concomitant]
     Route: 015
     Dates: start: 20080104

REACTIONS (10)
  - DRUG EXPOSURE DURING PREGNANCY [None]
  - FOETAL DISTRESS SYNDROME [None]
  - HIP DYSPLASIA [None]
  - HYPOCALCAEMIA [None]
  - HYPOGLYCAEMIA [None]
  - INGUINAL HERNIA [None]
  - JAUNDICE NEONATAL [None]
  - NEONATAL DISORDER [None]
  - NEONATAL RESPIRATORY DISTRESS SYNDROME [None]
  - PREMATURE BABY [None]
